FAERS Safety Report 9735431 (Version 2)
Quarter: 2013Q4

REPORT INFORMATION
  Report Type: Spontaneous
  Country: US (occurrence: US)
  Receive Date: 20131206
  Receipt Date: 20131210
  Transmission Date: 20140711
  Serious: Yes (Other)
  Sender: FDA-Public Use
  Company Number: CHPA2013US017801

PATIENT
  Age: 74 Year
  Sex: Female

DRUGS (5)
  1. VOLTAREN GEL [Suspect]
     Indication: PAIN IN EXTREMITY
     Dosage: 4 G, QD
     Route: 061
     Dates: start: 201309, end: 201310
  2. VOLTAREN GEL [Suspect]
     Indication: SWELLING
     Dosage: 2 G, UNK
     Route: 065
     Dates: start: 20131126
  3. VOLTAREN GEL [Suspect]
     Indication: OFF LABEL USE
  4. ANTIINFLAMMATORY AGENTS [Concomitant]
     Route: 065
  5. METHOTREXATE [Concomitant]
     Route: 065

REACTIONS (3)
  - Arthritis [Not Recovered/Not Resolved]
  - Therapeutic response unexpected [Unknown]
  - Drug ineffective for unapproved indication [Unknown]
